FAERS Safety Report 5374781-7 (Version None)
Quarter: 2007Q2

REPORT INFORMATION
  Report Type: 
  Country: None (occurrence: None)
  Receive Date: 20070629
  Receipt Date: 20070619
  Transmission Date: 20071010
  Serious: Yes (Hospitalization)
  Sender: FDA-Public Use
  Company Number: DE-ROCHE-482115

PATIENT
  Age: 63 Year
  Sex: Female
  Weight: 65.3 kg

DRUGS (11)
  1. CAPECITABINE [Suspect]
     Indication: BREAST CANCER METASTATIC
     Dosage: FREQUENCY REPORTED AS D1 TO 14 EVERY THREE WEEKS
     Route: 048
     Dates: start: 20070518, end: 20070531
  2. PACLITAXEL [Suspect]
     Indication: BREAST CANCER METASTATIC
     Route: 042
     Dates: start: 20070601, end: 20070601
  3. EPIRUBICIN [Suspect]
     Indication: BREAST CANCER METASTATIC
     Dosage: TREATMENT STOPPED AFTER DOSE OF SECOND CYCLE
     Route: 042
     Dates: end: 20070531
  4. CYCLOPHOSPHAMIDE [Suspect]
     Indication: BREAST CANCER METASTATIC
     Dosage: TREATMENT STOPPED AFTER DOSE OF SECOND CYCLE
     Route: 042
     Dates: end: 20070531
  5. DARBEPOETIN ALFA [Suspect]
     Dosage: FREQUENCY REPORTED AS ^1X^
     Route: 058
     Dates: start: 20070131, end: 20070131
  6. NEULASTA [Concomitant]
     Dosage: FREQUENCY REPORTED AS ^1X^
     Route: 058
     Dates: start: 20070201, end: 20070201
  7. CIPROFLOXACIN [Concomitant]
     Indication: PROPHYLAXIS
     Dosage: REGIMEN REPORTED AS 500 MG X 2, FREQUENCY OF ^1X^
     Route: 048
     Dates: start: 20070205, end: 20070205
  8. PASPERTIN [Concomitant]
     Route: 048
     Dates: start: 20070117
  9. FORTECORTIN [Concomitant]
     Route: 048
     Dates: start: 20070117, end: 20070119
  10. UROMITEXAN [Concomitant]
     Route: 048
     Dates: start: 20070117, end: 20070117
  11. NEXIUM [Concomitant]
     Route: 048
     Dates: start: 20070117

REACTIONS (1)
  - MASTITIS [None]
